FAERS Safety Report 6077694-0 (Version None)
Quarter: 2009Q1

REPORT INFORMATION
  Report Type: 
  Country: None (occurrence: None)
  Receive Date: 20090213
  Receipt Date: 20090209
  Transmission Date: 20090719
  Serious: Yes (Death)
  Sender: FDA-Public Use
  Company Number: AU-ROCHE-613406

PATIENT
  Sex: Female

DRUGS (1)
  1. ANAPROX [Suspect]
     Indication: DRUG USE FOR UNKNOWN INDICATION
     Route: 065
     Dates: start: 20060101

REACTIONS (1)
  - DEATH [None]
